FAERS Safety Report 8172003-5 (Version None)
Quarter: 2012Q1

REPORT INFORMATION
  Report Type: 
  Country: None (occurrence: None)
  Receive Date: 20120228
  Receipt Date: 20120221
  Transmission Date: 20120608
  Serious: Yes (Other)
  Sender: FDA-Public Use
  Company Number: US-PFIZER INC-2012006194

PATIENT
  Sex: Female
  Weight: 46.71 kg

DRUGS (11)
  1. CREON [Concomitant]
     Dosage: 2 CAP WITH MEALS AND 1 CAP WITH SNACKS AS DIRECTED
     Route: 048
  2. REMERON [Concomitant]
     Dosage: 15 MG, (TAKE 1 TABLET EVERY NIGHT AT BEDTIME)
     Route: 048
     Dates: start: 20091112
  3. PROMETHAZINE HYDROCHLORIDE [Concomitant]
     Indication: VOMITING
     Dosage: 25 MG, AS NEEDED (TAKE 12.5-25 MG EVERY 6 HOURS AS NEEDED)
     Route: 048
     Dates: start: 20110113
  4. VALIUM [Concomitant]
     Indication: MUSCLE SPASMS
     Dosage: 2.5 MG, AS NEEDED (EVERY 6 HOURS AS NEEDED)
     Route: 048
     Dates: start: 20110324
  5. ELAVIL [Concomitant]
     Dosage: 20 MG, 1X/DAY
     Route: 048
     Dates: start: 20110216
  6. LEVSIN [Concomitant]
     Indication: PAIN
     Dosage: 0.125 MG, AS NEEDED (TAKE 1-2 TABLETS EVERY 4 HOURS AS NEEDED)
     Route: 060
     Dates: start: 20110324
  7. ZOFRAN [Concomitant]
     Indication: NAUSEA
     Dosage: 4 MG, AS NEEDED (TAKE 1 TABLET EVERY 8 HOURS AS NEEDED)
     Route: 048
     Dates: start: 20110113
  8. NEURONTIN [Concomitant]
     Dosage: 400 MG, EVERY NIGHT AT BEDTIME
     Route: 048
     Dates: start: 20110324
  9. DILAUDID [Concomitant]
     Indication: PAIN
     Dosage: 2 MG, AS NEEDED (TAKE 1 TABLET EVERY 3 HOURS AS NEEDED)
     Route: 048
     Dates: start: 20110324
  10. LYRICA [Suspect]
     Dosage: UNK
  11. ACETAMINOPHEN [Concomitant]
     Dosage: 1000 MG, 1X/DAY (TAKE 1000 MG BY MOUTH ONCE DAILY AS NEEDED)
     Route: 048
     Dates: start: 20110127

REACTIONS (8)
  - DEAFNESS UNILATERAL [None]
  - BALANCE DISORDER [None]
  - OROPHARYNGEAL PAIN [None]
  - EAR PAIN [None]
  - PNEUMONIA [None]
  - MOTION SICKNESS [None]
  - DEAFNESS NEUROSENSORY [None]
  - EAR INFECTION [None]
